FAERS Safety Report 9215902 (Version 2)
Quarter: 2013Q2

REPORT INFORMATION
  Report Type: Spontaneous
  Country: US (occurrence: US)
  Receive Date: 20130408
  Receipt Date: 20130515
  Transmission Date: 20140414
  Serious: No
  Sender: FDA-Public Use
  Company Number: US-BIOGENIDEC-2013BI030445

PATIENT
  Sex: Male

DRUGS (1)
  1. TYSABRI [Suspect]
     Indication: MULTIPLE SCLEROSIS
     Route: 042
     Dates: start: 20091201

REACTIONS (7)
  - Sunburn [Not Recovered/Not Resolved]
  - White blood cell count increased [Not Recovered/Not Resolved]
  - Blister [Recovered/Resolved]
  - Lymphocyte count increased [Not Recovered/Not Resolved]
  - Urinary tract infection [Recovered/Resolved]
  - Drug effect decreased [Recovered/Resolved]
  - Multiple sclerosis [Recovered/Resolved]
